FAERS Safety Report 25154484 (Version 1)
Quarter: 2025Q2

REPORT INFORMATION
  Report Type: Spontaneous
  Country: US (occurrence: US)
  Receive Date: 20250403
  Receipt Date: 20250403
  Transmission Date: 20250717
  Serious: Yes (Other)
  Sender: SANOFI AVENTIS
  Company Number: US-DialogSolutions-SAAVPROD-PI751981-C1

PATIENT
  Age: 64 Year
  Sex: Female

DRUGS (2)
  1. RIFAMPIN [Suspect]
     Active Substance: RIFAMPIN
     Indication: Disseminated tuberculosis
  2. ISONIAZID [Concomitant]
     Active Substance: ISONIAZID
     Indication: Latent tuberculosis

REACTIONS (10)
  - Adrenal insufficiency [Unknown]
  - Hyponatraemia [Unknown]
  - Hypophagia [Unknown]
  - Hypovolaemia [Unknown]
  - Tachycardia [Unknown]
  - Hypotension [Unknown]
  - Mental status changes [Unknown]
  - Renal failure [Unknown]
  - Sepsis [Unknown]
  - Distributive shock [Unknown]
